FAERS Safety Report 23283602 (Version 2)
Quarter: 2023Q4

REPORT INFORMATION
  Report Type: Report from Study
  Country: CA (occurrence: CA)
  Receive Date: 20231211
  Receipt Date: 20231215
  Transmission Date: 20240110
  Serious: Yes (Other)
  Sender: FDA-Public Use
  Company Number: CA-BAYER-2023A177340

PATIENT
  Age: 36 Year
  Sex: Female

DRUGS (1)
  1. MIRENA [Suspect]
     Active Substance: LEVONORGESTREL
     Indication: Off label use
     Dosage: 20?G/DAY
     Route: 015
     Dates: start: 20231204

REACTIONS (4)
  - Device breakage [None]
  - Complication of device insertion [None]
  - Off label use [None]
  - Off label use of device [None]

NARRATIVE: CASE EVENT DATE: 20231204
